FAERS Safety Report 16851173 (Version 1)
Quarter: 2019Q3

REPORT INFORMATION
  Report Type: Report from Study
  Country: CN (occurrence: CN)
  Receive Date: 20190925
  Receipt Date: 20190925
  Transmission Date: 20191005
  Serious: Yes (Other)
  Sender: FDA-Public Use
  Company Number: CN-ELI_LILLY_AND_COMPANY-CN201909010070

PATIENT
  Age: 37 Year
  Sex: Female

DRUGS (4)
  1. DEXAMETHASONE. [Concomitant]
     Active Substance: DEXAMETHASONE
     Dosage: 5 MG, WEEKLY (1/W)
     Route: 037
  2. PEMETREXED. [Suspect]
     Active Substance: PEMETREXED
     Indication: METASTASES TO MENINGES
     Dosage: 10 MG, 2/W
     Route: 037
  3. PEMETREXED. [Suspect]
     Active Substance: PEMETREXED
     Dosage: 10 MG, WEEKLY (1/W)
     Route: 037
  4. DEXAMETHASONE. [Concomitant]
     Active Substance: DEXAMETHASONE
     Indication: METASTASES TO MENINGES
     Dosage: 5 MG, 2/W
     Route: 037

REACTIONS (3)
  - Bone marrow failure [Recovered/Resolved]
  - Hepatic enzyme increased [Recovered/Resolved]
  - Radiculopathy [Recovered/Resolved]
